FAERS Safety Report 9761865 (Version 1)
Quarter: 2013Q4

REPORT INFORMATION
  Report Type: Spontaneous
  Country: US (occurrence: US)
  Receive Date: 20131216
  Receipt Date: 20131216
  Transmission Date: 20140711
  Serious: No
  Sender: FDA-Public Use
  Company Number: US-BIOGENIDEC-2013BI108104

PATIENT
  Age: 56 Year
  Sex: Female

DRUGS (10)
  1. TECFIDERA [Suspect]
     Indication: MULTIPLE SCLEROSIS
     Route: 048
     Dates: start: 20130731
  2. ALPRAZOLAM [Concomitant]
  3. ASPIRIN [Concomitant]
  4. GABAPENTIN [Concomitant]
  5. HYDROCODONE-ACETAMINOPHEN [Concomitant]
  6. LEVOTHYROXINE [Concomitant]
  7. MELOXICAM [Concomitant]
  8. TRIAMTERENE AND HYDROCHLOROTHIAZIDE [Concomitant]
  9. LOVASTATIN [Concomitant]
  10. VITAMIN D3 [Concomitant]

REACTIONS (1)
  - Depression [Unknown]
